FAERS Safety Report 6526493-1 (Version None)
Quarter: 2009Q4

REPORT INFORMATION
  Report Type: 
  Country: None (occurrence: None)
  Receive Date: 20091222
  Receipt Date: 20091215
  Transmission Date: 20100525
  Serious: Yes (Hospitalization)
  Sender: FDA-Public Use
  Company Number: WAES 0912USA02214

PATIENT
  Age: 57 Year
  Sex: Female
  Weight: 53.978 kg

DRUGS (3)
  1. DECADRON [Suspect]
     Dosage: PO
     Route: 048
  2. THERAPEUTIC RADIOPHAMACEUTICAL (UNSPECIFIED) [Suspect]
     Dosage: DAILY
     Dates: start: 20091006
  3. BLINDED THERAPY [Suspect]
     Indication: PROPHYLAXIS
     Dosage: PO
     Route: 048
     Dates: start: 20091006

REACTIONS (6)
  - CHILLS [None]
  - HEADACHE [None]
  - MYALGIA [None]
  - OROPHARYNGEAL PAIN [None]
  - PNEUMONITIS [None]
  - WHITE BLOOD CELL COUNT INCREASED [None]
